FAERS Safety Report 23418057 (Version 1)
Quarter: 2024Q1

REPORT INFORMATION
  Report Type: Spontaneous
  Country: US (occurrence: None)
  Receive Date: 20240118
  Receipt Date: 20240118
  Transmission Date: 20240410
  Serious: Yes (Hospitalization)
  Sender: FDA-Public Use
  Company Number: None

PATIENT
  Age: 79 Year
  Sex: Female
  Weight: 78 kg

DRUGS (1)
  1. DARATUMUMAB\HYALURONIDASE-FIHJ [Suspect]
     Active Substance: DARATUMUMAB\HYALURONIDASE-FIHJ
     Dates: end: 20231220

REACTIONS (5)
  - Vision blurred [None]
  - Headache [None]
  - Sinus arrhythmia [None]
  - Hypocalcaemia [None]
  - Hypocalvaria [None]

NARRATIVE: CASE EVENT DATE: 20240110
